FAERS Safety Report 5304853-4 (Version None)
Quarter: 2007Q2

REPORT INFORMATION
  Report Type: 
  Country: None (occurrence: None)
  Receive Date: 20070423
  Receipt Date: 20070312
  Transmission Date: 20071010
  Serious: Yes (Other)
  Sender: FDA-Public Use
  Company Number: US-SANOFI-SYNTHELABO-A03200702444

PATIENT
  Sex: Female

DRUGS (2)
  1. LEXAPRO [Concomitant]
     Route: 048
     Dates: start: 20041001
  2. AMBIEN [Suspect]
     Indication: INSOMNIA
     Route: 048
     Dates: end: 20060201

REACTIONS (10)
  - ABNORMAL BEHAVIOUR [None]
  - AMNESIA [None]
  - CONCUSSION [None]
  - EATING DISORDER [None]
  - FALL [None]
  - POST-TRAUMATIC HEADACHE [None]
  - SLEEP TALKING [None]
  - SLEEP WALKING [None]
  - VISUAL DISTURBANCE [None]
  - WEIGHT INCREASED [None]
